FAERS Safety Report 14617028 (Version 2)
Quarter: 2018Q2

REPORT INFORMATION
  Report Type: Spontaneous
  Country: US (occurrence: US)
  Receive Date: 20180309
  Receipt Date: 20180410
  Transmission Date: 20180711
  Serious: Yes (Other)
  Sender: FDA-Public Use
  Company Number: PHEH2018US008960

PATIENT
  Sex: Female
  Weight: 76.2 kg

DRUGS (2)
  1. AROMASIN [Concomitant]
     Active Substance: EXEMESTANE
     Indication: PRODUCT USED FOR UNKNOWN INDICATION
     Route: 065
  2. AFINITOR [Suspect]
     Active Substance: EVEROLIMUS
     Indication: BREAST CANCER FEMALE
     Dosage: 10 MG, QD
     Route: 048
     Dates: start: 20170504, end: 201801

REACTIONS (1)
  - Neoplasm malignant [Unknown]
